FAERS Safety Report 8483350-1 (Version None)
Quarter: 2012Q3

REPORT INFORMATION
  Report Type: 
  Country: None (occurrence: None)
  Receive Date: 20120702
  Receipt Date: 20120622
  Transmission Date: 20120928
  Serious: Yes (Hospitalization, Other)
  Sender: FDA-Public Use
  Company Number: DE-BAXTER-2012BAX009487

PATIENT
  Sex: Female

DRUGS (2)
  1. KIOVIG [Suspect]
     Indication: GUILLAIN-BARRE SYNDROME
     Route: 042
     Dates: start: 20120612, end: 20120616
  2. KIOVIG [Suspect]
     Route: 042
     Dates: start: 20120612, end: 20120616

REACTIONS (2)
  - HAEMOGLOBIN DECREASED [None]
  - COOMBS DIRECT TEST POSITIVE [None]
